FAERS Safety Report 13609390 (Version 2)
Quarter: 2017Q2

REPORT INFORMATION
  Report Type: Report from Study
  Country: US (occurrence: US)
  Receive Date: 20170602
  Receipt Date: 20170619
  Transmission Date: 20170830
  Serious: Yes (Other)
  Sender: FDA-Public Use
  Company Number: US-BAYER-2017-098679

PATIENT
  Age: 73 Year
  Sex: Male

DRUGS (2)
  1. NEXAVAR [Suspect]
     Active Substance: SORAFENIB
     Indication: ACUTE MYELOID LEUKAEMIA
     Dosage: 400 MG, BID
     Route: 048
     Dates: start: 20170505, end: 20170508
  2. NEXAVAR [Suspect]
     Active Substance: SORAFENIB
     Indication: ACUTE MYELOID LEUKAEMIA
     Dosage: 200 MG, BID
     Route: 048
     Dates: start: 20170505, end: 20170511

REACTIONS (7)
  - Fatigue [Recovered/Resolved]
  - Aphonia [Recovered/Resolved]
  - Product use in unapproved indication [None]
  - Off label use [None]
  - Drug ineffective for unapproved indication [None]
  - Drug intolerance [None]
  - Abdominal pain lower [Recovered/Resolved]

NARRATIVE: CASE EVENT DATE: 20170509
